FAERS Safety Report 10168193 (Version 1)
Quarter: 2014Q2

REPORT INFORMATION
  Report Type: Spontaneous
  Country: US (occurrence: US)
  Receive Date: 20140512
  Receipt Date: 20140512
  Transmission Date: 20141212
  Serious: No
  Sender: FDA-Public Use
  Company Number: US-ASTRAZENECA-2013SE79187

PATIENT
  Sex: Female

DRUGS (2)
  1. FASLODEX [Suspect]
     Dosage: MONTHLY
     Route: 030
     Dates: start: 201301
  2. OTHER MEDICATIONS [Suspect]
     Route: 065

REACTIONS (3)
  - Glossodynia [Recovered/Resolved]
  - Pain in jaw [Recovered/Resolved]
  - Thirst [Unknown]
